FAERS Safety Report 5827890-X (Version None)
Quarter: 2008Q3

REPORT INFORMATION
  Report Type: 
  Country: None (occurrence: None)
  Receive Date: 20080730
  Receipt Date: 20080718
  Transmission Date: 20090109
  Serious: Yes (Other)
  Sender: FDA-Public Use
  Company Number: CH-PFIZER INC-2008054594

PATIENT
  Sex: Female
  Weight: 74 kg

DRUGS (6)
  1. LYRICA [Suspect]
     Route: 048
     Dates: start: 20080602, end: 20080624
  2. IBUPRIN [Concomitant]
  3. MORPHINE [Concomitant]
  4. IRFEN [Concomitant]
  5. MORPHINE [Concomitant]
  6. MOVICOL [Concomitant]

REACTIONS (22)
  - ABNORMAL DREAMS [None]
  - ARTHRALGIA [None]
  - BACK PAIN [None]
  - CONFUSIONAL STATE [None]
  - CONSTIPATION [None]
  - COORDINATION ABNORMAL [None]
  - DISTURBANCE IN ATTENTION [None]
  - DIZZINESS [None]
  - DRY MOUTH [None]
  - FATIGUE [None]
  - GAIT DISTURBANCE [None]
  - HEADACHE [None]
  - HYPOAESTHESIA [None]
  - LAZINESS [None]
  - MEMORY IMPAIRMENT [None]
  - MENTAL STATUS CHANGES [None]
  - MICTURITION DISORDER [None]
  - MYOCLONUS [None]
  - SOMNOLENCE [None]
  - SPEECH DISORDER [None]
  - SWELLING [None]
  - WEIGHT INCREASED [None]
